FAERS Safety Report 23810321 (Version 1)
Quarter: 2024Q2

REPORT INFORMATION
  Report Type: Spontaneous
  Country: US (occurrence: None)
  Receive Date: 20240501
  Receipt Date: 20240501
  Transmission Date: 20240716
  Serious: Yes (Other)
  Sender: FDA-Public Use
  Company Number: None

PATIENT
  Age: 73 Year
  Sex: Female
  Weight: 93.4 kg

DRUGS (1)
  1. HUMIRA [Suspect]
     Active Substance: ADALIMUMAB
     Indication: Psoriatic arthropathy
     Dosage: FREQUENCY : EVERY OTHER WEEK;?
     Route: 058
     Dates: start: 20231030, end: 20240410

REACTIONS (12)
  - Diarrhoea [None]
  - Peripheral swelling [None]
  - Pain [None]
  - Erythema [None]
  - Blister [None]
  - Rash [None]
  - Injection site reaction [None]
  - Injection site haemorrhage [None]
  - Injection site erythema [None]
  - Injection site pruritus [None]
  - Stevens-Johnson syndrome [None]
  - Type IV hypersensitivity reaction [None]

NARRATIVE: CASE EVENT DATE: 20240403
